FAERS Safety Report 14385318 (Version 1)
Quarter: 2018Q1

REPORT INFORMATION
  Report Type: Spontaneous
  Country: US (occurrence: US)
  Receive Date: 20180115
  Receipt Date: 20180115
  Transmission Date: 20180509
  Serious: Yes (Other)
  Sender: FDA-Public Use
  Company Number: US-SA-2016SA228341

PATIENT
  Age: 51 Year
  Sex: Female
  Weight: 126.55 kg

DRUGS (7)
  1. TAXOTERE [Suspect]
     Active Substance: DOCETAXEL
     Indication: BREAST CANCER FEMALE
     Route: 051
     Dates: start: 20110310, end: 20110310
  2. PROZAC [Concomitant]
     Active Substance: FLUOXETINE HYDROCHLORIDE
     Route: 065
  3. PARAPLATIN [Concomitant]
     Active Substance: CARBOPLATIN
  4. CARBOPLATIN. [Concomitant]
     Active Substance: CARBOPLATIN
  5. TRASTUZUMAB. [Concomitant]
     Active Substance: TRASTUZUMAB
  6. TAXOTERE [Suspect]
     Active Substance: DOCETAXEL
     Indication: BREAST CANCER FEMALE
     Route: 051
     Dates: start: 20110728, end: 20110728
  7. LOSARTAN POTASSIUM. [Concomitant]
     Active Substance: LOSARTAN POTASSIUM
     Route: 065

REACTIONS (6)
  - Anxiety [Unknown]
  - Pain [Unknown]
  - Impaired quality of life [Unknown]
  - Alopecia [Not Recovered/Not Resolved]
  - Psychological trauma [Unknown]
  - Emotional distress [Unknown]

NARRATIVE: CASE EVENT DATE: 201104
